FAERS Safety Report 9519948 (Version 3)
Quarter: 2014Q3

REPORT INFORMATION
  Report Type: Spontaneous
  Country: US (occurrence: US)
  Receive Date: 20130912
  Receipt Date: 20140814
  Transmission Date: 20150326
  Serious: Yes (Life-Threatening, Hospitalization, Other)
  Sender: FDA-Public Use
  Company Number: US-009507513-2009-198042-NL

PATIENT
  Sex: Female
  Weight: 72.58 kg

DRUGS (3)
  1. CHLOROQUINE [Concomitant]
     Active Substance: CHLOROQUINE\CHLOROQUINE PHOSPHATE
     Indication: MALARIA PROPHYLAXIS
     Dosage: 250 MG, BIW
     Dates: start: 200706
  2. NUVARING [Suspect]
     Active Substance: ETHINYL ESTRADIOL\ETONOGESTREL
     Indication: CONTRACEPTION
     Dosage: CONTINUING: NO
     Route: 067
     Dates: start: 20060826, end: 20070626
  3. IBUPROFEN. [Concomitant]
     Active Substance: IBUPROFEN

REACTIONS (8)
  - Ovarian cyst [Unknown]
  - Varicose vein [Unknown]
  - Telangiectasia [Unknown]
  - Pulmonary embolism [Recovered/Resolved]
  - May-Thurner syndrome [Unknown]
  - Deep vein thrombosis [Recovered/Resolved]
  - Vaginal discharge [Unknown]
  - Chlamydial infection [Recovered/Resolved]

NARRATIVE: CASE EVENT DATE: 200706
